FAERS Safety Report 4906848-9 (Version None)
Quarter: 2006Q1

REPORT INFORMATION
  Report Type: 
  Country: None (occurrence: None)
  Receive Date: 20060209
  Receipt Date: 20060110
  Transmission Date: 20060701
  Serious: Yes (Life-Threatening)
  Sender: FDA-Public Use
  Company Number: IL-NOVOPROD-249942

PATIENT
  Age: 17 Day
  Sex: Male
  Weight: 4 kg

DRUGS (3)
  1. NOVOSEVEN [Suspect]
     Indication: INTRAVENTRICULAR HAEMORRHAGE NEONATAL
     Dosage: 2 DOSES OF 300 UG WITH 8 HOURS INTERVAL
     Route: 042
     Dates: start: 20060106, end: 20060107
  2. MOXYPEN [Concomitant]
     Dosage: 150 MG, QD
     Route: 048
     Dates: start: 20060104, end: 20060110
  3. LUMINAL [Concomitant]
     Dosage: 15 MG, QD
     Route: 042
     Dates: start: 20060106

REACTIONS (1)
  - SUPERIOR SAGITTAL SINUS THROMBOSIS [None]
